FAERS Safety Report 15332563 (Version 5)
Quarter: 2018Q4

REPORT INFORMATION
  Report Type: Spontaneous
  Country: US (occurrence: US)
  Receive Date: 20180830
  Receipt Date: 20181203
  Transmission Date: 20190204
  Serious: Yes (Death, Other)
  Sender: FDA-Public Use
  Company Number: US-BRISTOL-MYERS SQUIBB COMPANY-BMS-2018-078571

PATIENT
  Sex: Female

DRUGS (1)
  1. ORENCIA [Suspect]
     Active Substance: ABATACEPT
     Indication: THORACIC VERTEBRAL FRACTURE
     Dosage: 125 MG, QWK
     Route: 058
     Dates: start: 20140613, end: 20180817

REACTIONS (2)
  - Cerebrovascular accident [Fatal]
  - Product use in unapproved indication [Unknown]
